FAERS Safety Report 16028164 (Version 1)
Quarter: 2019Q1

REPORT INFORMATION
  Report Type: Spontaneous
  Country: US (occurrence: US)
  Receive Date: 20190304
  Receipt Date: 20190304
  Transmission Date: 20190418
  Serious: Yes (Other)
  Sender: FDA-Public Use
  Company Number: US-ROCHE-2271699

PATIENT
  Age: 69 Year
  Sex: Male
  Weight: 79 kg

DRUGS (3)
  1. ACTEMRA [Suspect]
     Active Substance: TOCILIZUMAB
     Indication: ARTERIOSCLEROSIS
     Dosage: 162MG/0.9 ML. INITIAL DOSE
     Route: 058
     Dates: start: 201807
  2. ACTEMRA [Suspect]
     Active Substance: TOCILIZUMAB
     Route: 058
  3. ACTEMRA [Suspect]
     Active Substance: TOCILIZUMAB
     Route: 058
     Dates: start: 201901

REACTIONS (6)
  - Liver disorder [Unknown]
  - Ejection fraction decreased [Unknown]
  - Cardiac resynchronisation therapy [Unknown]
  - Syringe issue [Unknown]
  - Post procedural infection [Unknown]
  - Device malfunction [Unknown]

NARRATIVE: CASE EVENT DATE: 201807
